FAERS Safety Report 6460592-8 (Version None)
Quarter: 2009Q4

REPORT INFORMATION
  Report Type: 
  Country: None (occurrence: None)
  Receive Date: 20091130
  Receipt Date: 20091123
  Transmission Date: 20100525
  Serious: Yes (Death, Congenital Anomaly)
  Sender: FDA-Public Use
  Company Number: NO-ASTRAZENECA-2007SE00031

PATIENT
  Age: 0 Week
  Sex: Male
  Weight: 2.1 kg

DRUGS (2)
  1. ATACAND [Suspect]
     Route: 064
     Dates: end: 20061226
  2. NORMORIX MITE [Concomitant]
     Route: 064
     Dates: end: 20061226

REACTIONS (11)
  - DEFORMITY THORAX [None]
  - FOETAL DISORDER [None]
  - HEAD DEFORMITY [None]
  - PREMATURE BABY [None]
  - PULMONARY HYPOPLASIA [None]
  - PULMONARY MALFORMATION [None]
  - RENAL HYPERTROPHY [None]
  - RESPIRATORY DISORDER [None]
  - RESPIRATORY DISTRESS [None]
  - SKULL MALFORMATION [None]
  - SMALL FOR DATES BABY [None]
